FAERS Safety Report 14093411 (Version 8)
Quarter: 2020Q3

REPORT INFORMATION
  Report Type: Report from Study
  Country: JP (occurrence: JP)
  Receive Date: 20171016
  Receipt Date: 20200717
  Transmission Date: 20201102
  Serious: Yes (Other)
  Sender: FDA-Public Use
  Company Number: JP-JNJFOC-20171013915

PATIENT
  Age: 34 Year
  Sex: Male
  Weight: 64 kg

DRUGS (22)
  1. STELARA [Suspect]
     Active Substance: USTEKINUMAB
     Route: 058
     Dates: start: 20190129
  2. IMURAN [Concomitant]
     Active Substance: AZATHIOPRINE
     Indication: CROHN^S DISEASE
     Route: 048
  3. ZYLORIC [Concomitant]
     Active Substance: ALLOPURINOL
     Indication: HYPERURICAEMIA
     Route: 048
     Dates: start: 20170515
  4. STELARA [Suspect]
     Active Substance: USTEKINUMAB
     Route: 058
     Dates: start: 20180730, end: 20180730
  5. STELARA [Suspect]
     Active Substance: USTEKINUMAB
     Route: 058
     Dates: start: 20181203, end: 20181203
  6. FERROUS SULFATE. [Concomitant]
     Active Substance: FERROUS SULFATE
     Indication: ANAL ABSCESS
     Route: 048
     Dates: start: 20180416
  7. METHYCOBAL [Concomitant]
     Active Substance: METHYLCOBALAMIN
     Indication: ANAEMIA
     Route: 065
     Dates: start: 20180703, end: 20180703
  8. ZENTACORT [Concomitant]
     Active Substance: BUDESONIDE
     Indication: CROHN^S DISEASE
     Dosage: WHEN NEEDED
     Route: 048
  9. BETAMETHASONE SODIUM PHOSPHATE [Concomitant]
     Active Substance: BETAMETHASONE SODIUM PHOSPHATE
     Indication: ANAL ABSCESS
     Dosage: WHEN NEEDED
     Route: 065
     Dates: start: 20170802, end: 20170802
  10. STELARA [Suspect]
     Active Substance: USTEKINUMAB
     Route: 058
     Dates: start: 20171221, end: 20171221
  11. STELARA [Suspect]
     Active Substance: USTEKINUMAB
     Route: 058
     Dates: start: 20180529, end: 20180529
  12. SELBEX [Concomitant]
     Active Substance: TEPRENONE
     Indication: ANAL ABSCESS
     Dosage: UNKNOWN
     Route: 048
  13. STELARA [Suspect]
     Active Substance: USTEKINUMAB
     Route: 058
     Dates: start: 20181001, end: 20181001
  14. CRAVIT [Concomitant]
     Active Substance: LEVOFLOXACIN
     Indication: ANAL ABSCESS
     Dosage: UNKNOWN
     Route: 048
  15. LOXONIN [Concomitant]
     Active Substance: LOXOPROFEN SODIUM
     Indication: ANAL ABSCESS
     Route: 048
  16. FERRIC OXIDE, SACCHARATED [Concomitant]
     Active Substance: IRON SUCROSE
     Route: 065
     Dates: start: 20180703, end: 20180703
  17. MEIACT [Concomitant]
     Active Substance: CEFDITOREN PIVOXIL
     Indication: ANAL ABSCESS
     Route: 048
  18. FERRIC OXIDE, SACCHARATED [Concomitant]
     Active Substance: IRON SUCROSE
     Indication: ANAEMIA
     Route: 065
     Dates: start: 20180529, end: 20180529
  19. STELARA [Suspect]
     Active Substance: USTEKINUMAB
     Indication: CROHN^S DISEASE
     Route: 042
     Dates: start: 20170705, end: 20170705
  20. STELARA [Suspect]
     Active Substance: USTEKINUMAB
     Route: 058
     Dates: start: 20170929, end: 20170929
  21. STELARA [Suspect]
     Active Substance: USTEKINUMAB
     Route: 058
     Dates: start: 20180416, end: 20180416
  22. CALONAL [Concomitant]
     Active Substance: ACETAMINOPHEN
     Indication: ANAL ABSCESS
     Route: 048

REACTIONS (1)
  - Anal abscess [Recovering/Resolving]

NARRATIVE: CASE EVENT DATE: 20170718
